FAERS Safety Report 14970574 (Version 1)
Quarter: 2018Q2

REPORT INFORMATION
  Report Type: Spontaneous
  Country: US (occurrence: US)
  Receive Date: 20180514
  Receipt Date: 20180514
  Transmission Date: 20180711
  Serious: No
  Sender: FDA-Public Use
  Company Number: None

PATIENT
  Age: 37 Year
  Sex: Female
  Weight: 126 kg

DRUGS (5)
  1. PHENTERMINE. [Concomitant]
     Active Substance: PHENTERMINE
  2. CELEBREX [Concomitant]
     Active Substance: CELECOXIB
  3. LEXAPRO [Concomitant]
     Active Substance: ESCITALOPRAM OXALATE
  4. GABAPENTIN. [Concomitant]
     Active Substance: GABAPENTIN
  5. DIVALPROEX [Suspect]
     Active Substance: DIVALPROEX SODIUM
     Indication: BIPOLAR DISORDER
     Dosage: ?          QUANTITY:1 TABLET(S);?
     Route: 048
     Dates: start: 20180512, end: 20180514

REACTIONS (1)
  - Enuresis [None]

NARRATIVE: CASE EVENT DATE: 20180514
